FAERS Safety Report 15385817 (Version 1)
Quarter: 2018Q3

REPORT INFORMATION
  Report Type: Spontaneous
  Country: JP (occurrence: JP)
  Receive Date: 20180914
  Receipt Date: 20180914
  Transmission Date: 20181010
  Serious: Yes (Hospitalization)
  Sender: FDA-Public Use
  Company Number: JP-IPSEN BIOPHARMACEUTICALS, INC.-2018-09932

PATIENT
  Age: 63 Year
  Sex: Female

DRUGS (3)
  1. URSO [Concomitant]
     Active Substance: URSODIOL
     Indication: METASTASES TO LIVER
     Route: 048
     Dates: start: 201709, end: 20180502
  2. LIPACREON [Concomitant]
     Active Substance: PANCRELIPASE
     Route: 048
     Dates: start: 201412
  3. SOMATULINE 120MG [Suspect]
     Active Substance: LANREOTIDE ACETATE
     Indication: PANCREATIC NEUROENDOCRINE TUMOUR METASTATIC
     Dosage: 120 MG
     Route: 058
     Dates: start: 20170802, end: 20180502

REACTIONS (2)
  - Hypercalcaemia [Recovering/Resolving]
  - Diarrhoea [Recovering/Resolving]

NARRATIVE: CASE EVENT DATE: 20180307
